FAERS Safety Report 19506358 (Version 10)
Quarter: 2024Q1

REPORT INFORMATION
  Report Type: Spontaneous
  Country: CA (occurrence: CA)
  Receive Date: 20210708
  Receipt Date: 20240117
  Transmission Date: 20240410
  Serious: Yes (Hospitalization)
  Sender: FDA-Public Use
  Company Number: CA-MLMSERVICE-20210624-2967510-1

PATIENT
  Age: 10 Year
  Sex: Male

DRUGS (10)
  1. IBUPROFEN [Interacting]
     Active Substance: IBUPROFEN
     Indication: Pain
     Dosage: 600 MG Q6HR PRN
     Route: 048
     Dates: start: 20180128, end: 20180207
  2. HYDROMORPHONE HCL [Suspect]
     Active Substance: HYDROMORPHONE HYDROCHLORIDE
     Indication: Pain
     Dosage: 2 MG Q4HR PRN
     Route: 065
     Dates: start: 20180127, end: 20180202
  3. HYDROMORPHONE HCL [Suspect]
     Active Substance: HYDROMORPHONE HYDROCHLORIDE
     Dosage: 1 MG Q4HR PRN
     Route: 065
     Dates: start: 20180127, end: 20180202
  4. DESMOPRESSIN [Suspect]
     Active Substance: DESMOPRESSIN
     Indication: Diabetes insipidus
     Dosage: 0.6 MG PRN ON DAY 2, DAY 3, DAY 4 AND DAY 5.; AS REQUIRED
     Route: 065
     Dates: start: 20180203, end: 20180206
  5. DESMOPRESSIN [Suspect]
     Active Substance: DESMOPRESSIN
     Route: 048
  6. DESMOPRESSIN [Suspect]
     Active Substance: DESMOPRESSIN
     Dosage: DOSAGE FORM INTRANASAL
     Route: 045
     Dates: start: 201802
  7. HYDROCORTISONE [Concomitant]
     Active Substance: HYDROCORTISONE
     Indication: Diabetes insipidus
     Dosage: 6.3 MG/M2/DAY
     Route: 048
  8. HYDROCORTISONE [Concomitant]
     Active Substance: HYDROCORTISONE
     Route: 048
  9. HYDROCORTISONE [Concomitant]
     Active Substance: HYDROCORTISONE
     Dosage: DOUBLE MAINTENANCE FOR 2 ADDITIONAL DAYS
     Route: 065
  10. SOMATROPIN [Concomitant]
     Active Substance: SOMATROPIN
     Indication: Product used for unknown indication
     Dosage: GROWTH HORMONE
     Route: 058

REACTIONS (7)
  - Drug interaction [Recovered/Resolved]
  - Off label use [Unknown]
  - Seizure [Recovered/Resolved]
  - Unresponsive to stimuli [Recovered/Resolved]
  - Apnoea [Recovered/Resolved]
  - Lethargy [Recovered/Resolved]
  - Prescribed overdose [Unknown]

NARRATIVE: CASE EVENT DATE: 20180128
